FAERS Safety Report 9254009 (Version 1)
Quarter: 2013Q2

REPORT INFORMATION
  Report Type: Spontaneous
  Country: US (occurrence: None)
  Receive Date: 20130422
  Receipt Date: 20130422
  Transmission Date: 20140414
  Serious: Yes (Disabling)
  Sender: FDA-Public Use
  Company Number: None

PATIENT
  Age: 73 Year
  Sex: Male
  Weight: 77.11 kg

DRUGS (1)
  1. LEVOFLOXACIN [Suspect]
     Indication: ASTHMA
     Dosage: 1 PER DAY
     Route: 048
     Dates: start: 20130112, end: 20130114

REACTIONS (4)
  - Pain in extremity [None]
  - Arthralgia [None]
  - Pain in extremity [None]
  - Feeling abnormal [None]
